FAERS Safety Report 21581357 (Version 1)
Quarter: 2022Q4

REPORT INFORMATION
  Report Type: Spontaneous
  Country: US (occurrence: US)
  Receive Date: 20221111
  Receipt Date: 20221111
  Transmission Date: 20230112
  Serious: Yes (Other)
  Sender: FDA-Public Use
  Company Number: US-QILU PHARMACEUTICAL CO.LTD.-QLU-000084-2022

PATIENT
  Age: 57 Year
  Sex: Male

DRUGS (2)
  1. CEFAZOLIN [Suspect]
     Active Substance: CEFAZOLIN
     Indication: Osteomyelitis
     Dosage: 2 GRAM, EVERY 8 HOURS
     Route: 065
  2. HEPARIN [Concomitant]
     Active Substance: HEPARIN SODIUM
     Indication: Central venous catheterisation
     Dosage: 2000 U, WHEN APPROPRIATE
     Route: 065

REACTIONS (3)
  - Retroperitoneal haematoma [Recovered/Resolved]
  - Coagulopathy [Recovered/Resolved]
  - Hypoprothrombinaemia [Recovered/Resolved]
